FAERS Safety Report 13861715 (Version 3)
Quarter: 2017Q3

REPORT INFORMATION
  Report Type: Spontaneous
  Country: US (occurrence: US)
  Receive Date: 20170811
  Receipt Date: 20170929
  Transmission Date: 20171127
  Serious: No
  Sender: FDA-Public Use
  Company Number: US-009507513-1708USA004153

PATIENT
  Sex: Male
  Weight: 77.1 kg

DRUGS (1)
  1. BELSOMRA [Suspect]
     Active Substance: SUVOREXANT
     Indication: INSOMNIA
     Dosage: UNK UNK, HS
     Route: 048

REACTIONS (2)
  - Urine flow decreased [Recovered/Resolved]
  - Dysuria [Recovered/Resolved]
